FAERS Safety Report 25662055 (Version 1)
Quarter: 2025Q3

REPORT INFORMATION
  Report Type: Spontaneous
  Country: GB (occurrence: GB)
  Receive Date: 20250810
  Receipt Date: 20250810
  Transmission Date: 20251021
  Serious: Yes (Disabling)
  Sender: ALEXION PHARMACEUTICALS
  Company Number: None

PATIENT
  Age: 51 Year
  Sex: Female

DRUGS (1)
  1. CRESTOR [Suspect]
     Active Substance: ROSUVASTATIN CALCIUM
     Route: 065

REACTIONS (2)
  - Balance disorder [Not Recovered/Not Resolved]
  - Vertigo [Not Recovered/Not Resolved]
